FAERS Safety Report 13024064 (Version 1)
Quarter: 2016Q4

REPORT INFORMATION
  Report Type: Spontaneous
  Country: US (occurrence: US)
  Receive Date: 20161213
  Receipt Date: 20161213
  Transmission Date: 20170207
  Serious: No
  Sender: FDA-Public Use
  Company Number: US-DLSS-2016AYT000049

PATIENT
  Age: 63 Year
  Sex: Male

DRUGS (5)
  1. THERAGRAN                          /01824401/ [Concomitant]
     Dosage: UNK
  2. PROSTASCINT [Suspect]
     Active Substance: INDIUM IN-111 CAPROMAB PENDETIDE
     Indication: PROSTATE CANCER
     Dosage: 6.5 MCI, UNK
     Route: 042
     Dates: start: 20160725, end: 20160725
  3. SYNTHROID [Concomitant]
     Active Substance: LEVOTHYROXINE SODIUM
     Dosage: UNK
  4. PROSTASCINT [Suspect]
     Active Substance: INDIUM IN-111 CAPROMAB PENDETIDE
     Dosage: UNK
     Route: 042
     Dates: start: 2012
  5. PREDNISONE. [Concomitant]
     Active Substance: PREDNISONE
     Dosage: UNK

REACTIONS (3)
  - Rash [Recovering/Resolving]
  - Urticaria [Recovering/Resolving]
  - Pruritus generalised [Recovering/Resolving]

NARRATIVE: CASE EVENT DATE: 20160725
